FAERS Safety Report 8581782-4 (Version None)
Quarter: 2012Q3

REPORT INFORMATION
  Report Type: 
  Country: None (occurrence: None)
  Receive Date: 20120809
  Receipt Date: 20120806
  Transmission Date: 20120928
  Serious: Yes (Life-Threatening, Hospitalization)
  Sender: FDA-Public Use
  Company Number: PHHY2012JP058288

PATIENT
  Age: 92 Year
  Sex: Male
  Weight: 41 kg

DRUGS (5)
  1. ZOMETA [Suspect]
     Indication: PROSTATE CANCER
     Dosage: 4 MG, PER ADMINISTRATION
     Dates: start: 20090219, end: 20120410
  2. SULPIRIDE [Concomitant]
     Dosage: 25 MG, UNK
     Route: 048
     Dates: start: 20120321
  3. LEUPROLIDE ACETATE [Concomitant]
     Indication: PROSTATE CANCER
     Route: 058
     Dates: start: 20020719
  4. KREMEZIN [Concomitant]
     Indication: RENAL DISORDER
     Dosage: 4 G, UNK
     Dates: start: 20010203
  5. FAMOTIDINE [Concomitant]
     Dosage: 10 MG, UNK
     Route: 048
     Dates: start: 20120321

REACTIONS (5)
  - ANAEMIA [None]
  - FATIGUE [None]
  - HYPOCALCAEMIA [None]
  - RENAL FAILURE ACUTE [None]
  - OVERDOSE [None]
